FAERS Safety Report 11524691 (Version 1)
Quarter: 2015Q3

REPORT INFORMATION
  Report Type: Spontaneous
  Country: GB (occurrence: GB)
  Receive Date: 20150918
  Receipt Date: 20150918
  Transmission Date: 20151125
  Serious: Yes (Hospitalization)
  Sender: FDA-Public Use
  Company Number: GB-TEVA-592889ACC

PATIENT
  Age: 66 Year
  Sex: Female

DRUGS (6)
  1. FLUPENTHIXOL [Concomitant]
     Active Substance: FLUPENTIXOL DECANOATE
     Dosage: DEPOT
  2. PROCYCLIDINE [Concomitant]
     Active Substance: PROCYCLIDINE
     Dosage: 15 MILLIGRAM DAILY;
     Route: 048
  3. QUETIAPINE [Concomitant]
     Active Substance: QUETIAPINE
     Dosage: 200 MILLIGRAM DAILY; FOR MANY YEARS
     Dates: end: 201506
  4. QUETIAPINE [Concomitant]
     Active Substance: QUETIAPINE
     Dosage: 100 MILLIGRAM DAILY;
     Route: 048
     Dates: start: 201506
  5. SIMVASTATIN. [Suspect]
     Active Substance: SIMVASTATIN
     Indication: BLOOD CHOLESTEROL
     Dosage: 40 MILLIGRAM DAILY; EVERY NIGHT
     Route: 048
     Dates: end: 20150827
  6. PARACETAMOL [Concomitant]
     Active Substance: ACETAMINOPHEN

REACTIONS (3)
  - Blood creatine phosphokinase increased [Not Recovered/Not Resolved]
  - Fall [Unknown]
  - Rhabdomyolysis [Recovering/Resolving]
